FAERS Safety Report 12529980 (Version 1)
Quarter: 2016Q3

REPORT INFORMATION
  Report Type: Spontaneous
  Country: US (occurrence: None)
  Receive Date: 20160705
  Receipt Date: 20160705
  Transmission Date: 20161109
  Serious: No
  Sender: FDA-Public Use
  Company Number: None

PATIENT
  Age: 47 Year
  Sex: Female
  Weight: 63.5 kg

DRUGS (1)
  1. LAMOTRIGINE. [Suspect]
     Active Substance: LAMOTRIGINE
     Indication: MOOD ALTERED
     Dosage: 60 TABLET(S) TWICE A DAY TAKEN BY MOUTH
     Route: 048

REACTIONS (5)
  - Similar reaction on previous exposure to drug [None]
  - Drug effect increased [None]
  - Mood altered [None]
  - Emotional disorder [None]
  - Condition aggravated [None]

NARRATIVE: CASE EVENT DATE: 20160701
